FAERS Safety Report 8575718-X (Version None)
Quarter: 2012Q3

REPORT INFORMATION
  Report Type: 
  Country: None (occurrence: None)
  Receive Date: 20120807
  Receipt Date: 20120803
  Transmission Date: 20120928
  Serious: No
  Sender: FDA-Public Use
  Company Number: PHHY2012BR051780

PATIENT
  Sex: Female
  Weight: 80 kg

DRUGS (1)
  1. SANDOSTATIN LAR [Suspect]
     Indication: PITUITARY TUMOUR
     Dosage: EVERY 28 DAYS
     Dates: start: 20110701

REACTIONS (1)
  - PITUITARY TUMOUR [None]
